FAERS Safety Report 9170530 (Version 1)
Quarter: 2013Q1

REPORT INFORMATION
  Report Type: Spontaneous
  Country: US (occurrence: US)
  Receive Date: 20130319
  Receipt Date: 20130319
  Transmission Date: 20140127
  Serious: Yes (Other)
  Sender: FDA-Public Use
  Company Number: US-JNJFOC-20130305032

PATIENT
  Sex: Male
  Weight: 79.38 kg

DRUGS (4)
  1. HALDOL [Suspect]
     Indication: SCHIZOPHRENIA
     Route: 065
  2. COGENTIN [Suspect]
     Indication: SCHIZOPHRENIA
     Route: 065
  3. COGENTIN [Suspect]
     Indication: SCHIZOPHRENIA
     Dosage: REDUCED DOSE (HALF TABLET)
     Route: 065
  4. ABILIFY [Suspect]
     Indication: SCHIZOPHRENIA
     Route: 065

REACTIONS (7)
  - Cataract [Not Recovered/Not Resolved]
  - Dehydration [Not Recovered/Not Resolved]
  - Adverse event [Unknown]
  - Dry eye [Not Recovered/Not Resolved]
  - Dry mouth [Not Recovered/Not Resolved]
  - Malaise [Not Recovered/Not Resolved]
  - Drug ineffective [Unknown]
